FAERS Safety Report 8811108 (Version 1)
Quarter: 2012Q4

REPORT INFORMATION
  Report Type: Spontaneous
  Country: US (occurrence: None)
  Receive Date: 20120924
  Receipt Date: 20120924
  Transmission Date: 20130627
  Serious: Yes (Hospitalization, Other)
  Sender: FDA-Public Use
  Company Number: OPGN20120019

PATIENT
  Age: 37 Year
  Sex: Male

DRUGS (7)
  1. OXYMORPHONE HYDROCHLORIDE [Suspect]
     Indication: PRODUCT USED FOR UNKNOWN INDICATION
  2. PERCOCET [Concomitant]
  3. NICOTINE (NICOTINE) (NICOTINE) [Concomitant]
  4. DIPHENHYDRAMINE (DIPHENHYDRAMINE) (DIPHENHYDRAMINE) [Concomitant]
  5. IBUPROFEN (IBUPROFEN) (IBUPROFEN) [Concomitant]
  6. CITALOPRAM (CITALOPRAM) (CITALOPRAM) [Concomitant]
  7. OXCARBAZEPINE (OXCARBAZEPINE) (OXCARBAZINE) [Concomitant]

REACTIONS (5)
  - Deafness [None]
  - Feeling abnormal [None]
  - Drug screen positive [None]
  - Drug abuse [None]
  - Incorrect route of drug administration [None]
